FAERS Safety Report 7284765-X (Version None)
Quarter: 2011Q1

REPORT INFORMATION
  Report Type: 
  Country: None (occurrence: None)
  Receive Date: 20110210
  Receipt Date: 20110202
  Transmission Date: 20110831
  Serious: Yes (Other)
  Sender: FDA-Public Use
  Company Number: US-US-EMD SERONO, INC.-233272K09USA

PATIENT
  Sex: Female
  Weight: 68 kg

DRUGS (2)
  1. REBIF [Suspect]
     Indication: MULTIPLE SCLEROSIS
     Route: 058
     Dates: start: 20090211, end: 20090308
  2. REBIF [Suspect]
     Route: 058
     Dates: start: 20090211

REACTIONS (2)
  - PLACENTAL DISORDER [None]
  - DRUG EXPOSURE DURING PREGNANCY [None]
